FAERS Safety Report 7692710-8 (Version None)
Quarter: 2011Q3

REPORT INFORMATION
  Report Type: 
  Country: None (occurrence: None)
  Receive Date: 20110819
  Receipt Date: 20110816
  Transmission Date: 20111222
  Serious: Yes (Other)
  Sender: FDA-Public Use
  Company Number: US-PFIZER INC-2011105575

PATIENT
  Sex: Female
  Weight: 77.098 kg

DRUGS (30)
  1. ULTRAM [Concomitant]
     Indication: DRUG TOLERANCE INCREASED
     Dosage: 50 MG, EVERY 6 HOURS
     Route: 048
  2. MIDRIN [Concomitant]
     Indication: HEADACHE
     Dosage: UNK
     Route: 048
  3. SINGULAIR [Concomitant]
     Dosage: 10 MG, DAILY
     Route: 048
  4. GEMFIBROZIL [Concomitant]
     Dosage: 600 MG, 2X/DAY
  5. TRIMETHOBENZAMIDE HYDROCHLORIDE [Concomitant]
     Dosage: 200 MG, UNK
  6. IBUPROFEN [Concomitant]
     Dosage: 200 MG, AS NEEDED
  7. CHANTIX [Suspect]
     Indication: SMOKING CESSATION THERAPY
     Dosage: 0.5 MG, DAILY
     Route: 048
     Dates: start: 20110301, end: 20110101
  8. CHANTIX [Suspect]
     Dosage: 1 MG, 2X/DAY
     Route: 048
     Dates: start: 20110101, end: 20110317
  9. NEXIUM [Concomitant]
     Indication: GASTRIC DISORDER
     Dosage: 40 MG, 1X/DAY
  10. ATIVAN [Concomitant]
     Dosage: 1 MG, 2X/DAY
     Route: 048
  11. AVONEX [Concomitant]
     Dosage: UNK
  12. SUCRALFATE [Concomitant]
     Dosage: 1 G, 4X/DAY
  13. TYLENOL W/ CODEINE NO. 4 [Concomitant]
     Indication: PAIN
     Dosage: 300/60
     Route: 048
  14. AMITRIPTYLINE [Concomitant]
     Dosage: 25 MG, UNK
  15. ZOLPIDEM TARTRATE [Concomitant]
     Dosage: 5 MG, DAILY
  16. MAXALT [Concomitant]
     Dosage: 10 MG, AS NEEDED
     Route: 048
  17. FOLIC ACID [Concomitant]
     Dosage: 1 MG, DAILY
  18. LITHIUM [Concomitant]
     Dosage: UNK
  19. DARVON [Concomitant]
     Dosage: 200 MG, 2X/DAY
  20. PROAIR HFA [Concomitant]
     Dosage: 1 PUFF, AS NEEDED
  21. ROBAXIN [Concomitant]
     Indication: PAIN
     Dosage: 1000 MG, 4X/DAY
     Route: 048
  22. IMITREX [Concomitant]
     Indication: MIGRAINE
     Dosage: 100 MG, AS NEEDED
     Route: 048
  23. ADVAIR DISKUS 100/50 [Concomitant]
     Dosage: 250/50 A?G, 2X/DAY
  24. FLURAZEPAM [Concomitant]
     Dosage: 40 MG, DAILY
  25. METHOTREXATE [Concomitant]
     Dosage: 10 MG, WEEKLY
     Route: 048
  26. FLUTICASONE [Concomitant]
     Dosage: 50 UG, UNK
  27. MOBIC [Concomitant]
     Indication: ARTHRITIS
     Dosage: 7.5 MG, 2X/DAY
     Route: 048
  28. SOMA [Concomitant]
     Indication: MUSCLE SPASMS
     Dosage: 250 MG, 4X/DAY
     Route: 048
  29. DIPHENHYDRAMINE [Concomitant]
     Dosage: 25 MG, AS NEEDED
  30. ESTRADIOL [Concomitant]
     Dosage: 2 MG, DAILY

REACTIONS (4)
  - DYSGEUSIA [None]
  - HYPOAESTHESIA [None]
  - CONVULSION [None]
  - SALIVARY HYPERSECRETION [None]
